FAERS Safety Report 9240956 (Version 1)
Quarter: 2013Q2

REPORT INFORMATION
  Report Type: Spontaneous
  Country: US (occurrence: US)
  Receive Date: 20130418
  Receipt Date: 20130418
  Transmission Date: 20140414
  Serious: No
  Sender: FDA-Public Use
  Company Number: US-SANOFI-AVENTIS-2013SA014723

PATIENT
  Age: 72 Year
  Sex: Female

DRUGS (1)
  1. LOVENOX [Suspect]
     Route: 065
     Dates: start: 20130114

REACTIONS (5)
  - Injection site bruising [Recovered/Resolved]
  - Injection site mass [Not Recovered/Not Resolved]
  - Nodule [Not Recovered/Not Resolved]
  - Pain [Not Recovered/Not Resolved]
  - Overdose [Unknown]
